FAERS Safety Report 23892203 (Version 1)
Quarter: 2024Q2

REPORT INFORMATION
  Report Type: Spontaneous
  Country: US (occurrence: None)
  Receive Date: 20240524
  Receipt Date: 20240524
  Transmission Date: 20240715
  Serious: No
  Sender: FDA-Public Use
  Company Number: US-ROCHE-3537582

PATIENT
  Sex: Female

DRUGS (8)
  1. ACTEMRA [Suspect]
     Active Substance: TOCILIZUMAB
     Indication: Interstitial lung disease
     Route: 065
  2. VITAMIN B COMPLEX [Concomitant]
     Active Substance: CYANOCOBALAMIN\DEXPANTHENOL\NIACINAMIDE\PYRIDOXINE HYDROCHLORIDE\RIBOFLAVIN 5^-PHOSPHATE SODIUM\THIA
  3. CALCIUM [Concomitant]
     Active Substance: CALCIUM
  4. ELIQUIS [Concomitant]
     Active Substance: APIXABAN
  5. GLUCOSAMINE [Concomitant]
     Active Substance: GLUCOSAMINE
  6. PREDNISONE [Concomitant]
     Active Substance: PREDNISONE
  7. SIMVASTATIN [Concomitant]
     Active Substance: SIMVASTATIN
  8. VITAMIN D3 [Concomitant]
     Active Substance: CHOLECALCIFEROL

REACTIONS (5)
  - Cough [Unknown]
  - Epistaxis [Unknown]
  - Dyspnoea exertional [Unknown]
  - Depression [Unknown]
  - Memory impairment [Unknown]
